FAERS Safety Report 7472922-9 (Version None)
Quarter: 2011Q2

REPORT INFORMATION
  Report Type: 
  Country: None (occurrence: None)
  Receive Date: 20110511
  Receipt Date: 20110427
  Transmission Date: 20111010
  Serious: No
  Sender: FDA-Public Use
  Company Number: US-B.I. PHARMACEUTICALS,INC./RIDGEFIELD-2011-BP-11964BP

PATIENT
  Age: 85 Year
  Sex: Female

DRUGS (9)
  1. MICARDIS [Suspect]
     Indication: HYPERTENSION
     Dosage: 80 MG
     Route: 048
     Dates: start: 20110421
  2. CALCIUM [Concomitant]
     Indication: OSTEOPOROSIS
     Dosage: 600 MG
     Route: 048
  3. ACETAMINOPHEN [Concomitant]
     Indication: OSTEOPOROSIS
     Route: 048
  4. PROCRIT [Concomitant]
     Indication: ANAEMIA
  5. LEVOTHYROXINE SODIUM [Concomitant]
     Indication: HYPOTHYROIDISM
     Dosage: 75 MCG
     Route: 048
  6. HYALURONIC ACID [Concomitant]
     Indication: PROPHYLAXIS
  7. VITAMIN D [Concomitant]
     Indication: PROPHYLAXIS
  8. ASPIRIN [Concomitant]
     Indication: PROPHYLAXIS
     Route: 048
  9. MULTI-VITAMIN [Concomitant]
     Indication: PROPHYLAXIS

REACTIONS (5)
  - DIZZINESS [None]
  - HEADACHE [None]
  - ASTHENIA [None]
  - DYSPHONIA [None]
  - NOCTURIA [None]
